FAERS Safety Report 8648037 (Version 2)
Quarter: 2012Q4

REPORT INFORMATION
  Report Type: Report from Study
  Country: DE (occurrence: DE)
  Receive Date: 20120703
  Receipt Date: 20121024
  Transmission Date: 20130627
  Serious: Yes (Life-Threatening, Hospitalization)
  Sender: FDA-Public Use
  Company Number: DE-ROCHE-1078734

PATIENT
  Age: 41 Year
  Sex: Female
  Weight: 79 kg

DRUGS (5)
  1. TRASTUZUMAB [Suspect]
     Indication: BREAST CANCER
     Dosage: Last dose prior to SAE on 08/Jun/2012
     Route: 042
     Dates: start: 20120412
  2. TRASTUZUMAB [Suspect]
     Dosage: 483mg
     Route: 042
  3. PACLITAXEL [Suspect]
     Indication: BREAST CANCER
     Dosage: Last dose prior to SAE on 08/Jun/2012
     Route: 042
     Dates: start: 20120412, end: 20120612
  4. LIPOSOMAL DOXORUBICIN [Suspect]
     Indication: BREAST CANCER
     Dosage: Last dose prior to SAE on 08/Jun/2012
     Route: 042
     Dates: start: 20120412, end: 20120612
  5. LAPATINIB [Suspect]
     Indication: BREAST CANCER
     Route: 048
     Dates: start: 20120412, end: 20120612

REACTIONS (1)
  - Pneumonia [Recovered/Resolved]
